FAERS Safety Report 25808445 (Version 2)
Quarter: 2025Q3

REPORT INFORMATION
  Report Type: Spontaneous
  Country: US (occurrence: US)
  Receive Date: 20250916
  Receipt Date: 20250926
  Transmission Date: 20251020
  Serious: No
  Sender: BAYER HEALTHCARE LLC
  Company Number: US-BAYER-2025A122807

PATIENT
  Age: 39 Year
  Sex: Male

DRUGS (4)
  1. CLARITIN [Suspect]
     Active Substance: LORATADINE
     Indication: Hypersensitivity
     Dosage: 1 DF, QD, DURATION OF DRUG ADMINISTRATION:19-20 DAYS
     Route: 048
     Dates: start: 20250821, end: 20250905
  2. CLARITIN [Suspect]
     Active Substance: LORATADINE
     Indication: Nasopharyngitis
  3. CLARITIN [Suspect]
     Active Substance: LORATADINE
     Indication: Rhinorrhoea
  4. CLARITIN [Suspect]
     Active Substance: LORATADINE
     Indication: Lacrimation increased

REACTIONS (1)
  - Drug ineffective [Not Recovered/Not Resolved]

NARRATIVE: CASE EVENT DATE: 20250821
